FAERS Safety Report 6261504-2 (Version None)
Quarter: 2009Q3

REPORT INFORMATION
  Report Type: 
  Country: None (occurrence: None)
  Receive Date: 20090709
  Receipt Date: 20090630
  Transmission Date: 20100115
  Serious: Yes (Life-Threatening)
  Sender: FDA-Public Use
  Company Number: BR-WYE-H09965109

PATIENT
  Sex: Female
  Weight: 60 kg

DRUGS (7)
  1. PREMARIN [Suspect]
     Indication: HORMONE THERAPY
     Route: 048
     Dates: start: 20060101, end: 20090605
  2. HALDOL [Suspect]
     Indication: DEPRESSION
     Dosage: UNKNOWN
     Route: 065
  3. PANTOPRAZOLE SODIUM [Concomitant]
     Indication: GASTRIC HAEMORRHAGE
     Dosage: UNKNOWN
     Route: 065
  4. IMIPRAMINE [Suspect]
     Indication: DEPRESSION
     Route: 065
  5. ULTRACET [Concomitant]
     Indication: ANALGESIC THERAPY
     Dosage: TABLET
     Route: 065
  6. LEVOTHYROXINE SODIUM [Concomitant]
     Indication: HYPERTHYROIDISM
     Dosage: 100MCG ONCE DAILY
     Route: 065
  7. BROMAZEPAM [Concomitant]
     Dosage: 6 MG EVERY
     Route: 065

REACTIONS (4)
  - CHILLS [None]
  - DIZZINESS [None]
  - SUICIDE ATTEMPT [None]
  - VAGINAL HAEMORRHAGE [None]
